FAERS Safety Report 5850924-3 (Version None)
Quarter: 2008Q3

REPORT INFORMATION
  Report Type: 
  Country: None (occurrence: None)
  Receive Date: 20080820
  Receipt Date: 20080812
  Transmission Date: 20090109
  Serious: Yes (Hospitalization)
  Sender: FDA-Public Use
  Company Number: PHHY2008DE17887

PATIENT
  Sex: Male

DRUGS (2)
  1. DICLOFENAC [Suspect]
     Indication: PAIN IN JAW
     Dosage: 2 DF/DAY
     Route: 048
     Dates: start: 20080529, end: 20080605
  2. VOLTAREN [Concomitant]
     Dosage: 3DF/WEEK
     Route: 048
     Dates: start: 20080529, end: 20080605

REACTIONS (4)
  - ANAEMIA HAEMOLYTIC AUTOIMMUNE [None]
  - BLOOD BILIRUBIN INCREASED [None]
  - BLOOD LACTATE DEHYDROGENASE INCREASED [None]
  - HAEMOGLOBIN DECREASED [None]
